FAERS Safety Report 9009333 (Version 1)
Quarter: 2013Q1

REPORT INFORMATION
  Report Type: Spontaneous
  Country: US (occurrence: US)
  Receive Date: 20130111
  Receipt Date: 20130111
  Transmission Date: 20140127
  Serious: Yes (Hospitalization, Other)
  Sender: FDA-Public Use
  Company Number: US-TEVA-379776USA

PATIENT
  Age: 29 Year
  Sex: Female

DRUGS (5)
  1. BUPROPION [Suspect]
     Indication: OVERDOSE
     Route: 065
  2. GABAPENTIN [Suspect]
     Indication: OVERDOSE
     Dosage: 2100MG
     Route: 048
  3. GABAPENTIN [Suspect]
     Indication: MOVEMENT DISORDER
     Dosage: ONCE DAILY
     Route: 065
  4. AMFETAMINE [Concomitant]
     Indication: ATTENTION DEFICIT/HYPERACTIVITY DISORDER
     Route: 065
  5. DEXAMFETAMINE [Concomitant]
     Indication: ATTENTION DEFICIT/HYPERACTIVITY DISORDER
     Route: 065

REACTIONS (6)
  - Electroencephalogram abnormal [Recovered/Resolved]
  - Grand mal convulsion [Recovered/Resolved]
  - Sinus tachycardia [Unknown]
  - Electrocardiogram QT prolonged [Unknown]
  - Cardiogenic shock [Recovering/Resolving]
  - Overdose [Recovering/Resolving]
